FAERS Safety Report 14679057 (Version 1)
Quarter: 2018Q1

REPORT INFORMATION
  Report Type: Report from Study
  Country: CN (occurrence: CN)
  Receive Date: 20180326
  Receipt Date: 20180326
  Transmission Date: 20180509
  Serious: Yes (Other)
  Sender: FDA-Public Use
  Company Number: PHHY2018CN050709

PATIENT
  Age: 51 Year
  Sex: Male

DRUGS (2)
  1. MYFORTIC [Suspect]
     Active Substance: MYCOPHENOLATE SODIUM
     Indication: RENAL TRANSPLANT
     Dosage: 1260 MG, UNK
     Route: 065
     Dates: start: 20160415, end: 20160517
  2. MYFORTIC [Suspect]
     Active Substance: MYCOPHENOLATE SODIUM
     Dosage: 900 MG, UNK
     Route: 065
     Dates: start: 20160518

REACTIONS (6)
  - Diarrhoea [Recovered/Resolved]
  - Gastric ulcer [Recovered/Resolved]
  - Hyperlipidaemia [Not Recovered/Not Resolved]
  - Liver injury [Recovered/Resolved]
  - Hyperuricaemia [Not Recovered/Not Resolved]
  - Hypercholesterolaemia [Recovered/Resolved]

NARRATIVE: CASE EVENT DATE: 20160504
